FAERS Safety Report 5838254-7 (Version None)
Quarter: 2008Q3

REPORT INFORMATION
  Report Type: 
  Country: None (occurrence: None)
  Receive Date: 20080808
  Receipt Date: 20080730
  Transmission Date: 20090109
  Serious: Yes (Hospitalization)
  Sender: FDA-Public Use
  Company Number: FR-AVENTIS-200812858FR

PATIENT
  Age: 60 Year
  Sex: Male

DRUGS (6)
  1. TAXOTERE [Suspect]
     Route: 042
     Dates: start: 20060619, end: 20061031
  2. CISPLATINE MERCK [Suspect]
     Route: 042
     Dates: start: 20060919, end: 20061031
  3. PEGFILGRASTIM [Suspect]
     Route: 058
  4. ERBITUX [Concomitant]
  5. SINTROM [Concomitant]
     Indication: DRUG USE FOR UNKNOWN INDICATION
  6. FLUOROURACIL [Concomitant]

REACTIONS (4)
  - ACUTE PROMYELOCYTIC LEUKAEMIA [None]
  - ASTHENIA [None]
  - COAGULOPATHY [None]
  - PANCYTOPENIA [None]
